FAERS Safety Report 20552055 (Version 6)
Quarter: 2024Q1

REPORT INFORMATION
  Report Type: Spontaneous
  Country: US (occurrence: US)
  Receive Date: 20220304
  Receipt Date: 20240202
  Transmission Date: 20240410
  Serious: Yes (Disabling, Other)
  Sender: FDA-Public Use
  Company Number: US-ORGANON-O2203USA000384

PATIENT
  Sex: Male

DRUGS (11)
  1. SINGULAIR [Suspect]
     Active Substance: MONTELUKAST SODIUM
     Indication: Asthma
     Dosage: UNK
     Route: 048
     Dates: start: 2005, end: 2019
  2. SINGULAIR [Suspect]
     Active Substance: MONTELUKAST SODIUM
     Indication: Hypersensitivity
     Dosage: 5 MG EVERY DAY IN THE EVENING
     Route: 048
     Dates: start: 2012, end: 201905
  3. SINGULAIR [Suspect]
     Active Substance: MONTELUKAST SODIUM
     Indication: Otitis externa
     Dosage: 1 TABLET(S) PO QD, 30 DAYS, 3 REFILLS, FOR A TOTAL OF 30,
     Route: 048
     Dates: start: 20120814, end: 20121211
  4. SINGULAIR [Suspect]
     Active Substance: MONTELUKAST SODIUM
     Indication: Eustachian tube dysfunction
  5. NASONEX [Suspect]
     Active Substance: MOMETASONE FUROATE
     Indication: Otitis externa
     Dosage: 1 SPRAY NASAL QD
     Route: 045
     Dates: start: 20120814, end: 20121211
  6. NASONEX [Suspect]
     Active Substance: MOMETASONE FUROATE
     Indication: Eustachian tube dysfunction
  7. OFLOXACIN [Concomitant]
     Active Substance: OFLOXACIN
     Indication: Otitis externa
     Dosage: 5 DOSAGE FORM, TID
     Route: 001
     Dates: start: 20120814, end: 20120820
  8. OFLOXACIN [Concomitant]
     Active Substance: OFLOXACIN
     Indication: Eustachian tube dysfunction
  9. EPIPEN [Concomitant]
     Active Substance: EPINEPHRINE
     Dosage: UNK, PRN (0.3 MG/0.3 ML) (1:1,000) (IM USE AS DIRECTED)
     Route: 030
  10. ORAPRED [Concomitant]
     Active Substance: PREDNISOLONE SODIUM PHOSPHATE
     Dosage: 5CC PO BID FOR 4 DAYS
     Route: 048
  11. ORAPRED [Concomitant]
     Active Substance: PREDNISOLONE SODIUM PHOSPHATE
     Dosage: 2 1BY2 CC PO BID FOR 2 DAYS
     Route: 048

REACTIONS (14)
  - Neuropsychological symptoms [Not Recovered/Not Resolved]
  - Intentional self-injury [Not Recovered/Not Resolved]
  - Suicidal ideation [Not Recovered/Not Resolved]
  - Product use in unapproved indication [Unknown]
  - Nightmare [Not Recovered/Not Resolved]
  - Anxiety [Not Recovered/Not Resolved]
  - Memory impairment [Not Recovered/Not Resolved]
  - Disturbance in attention [Not Recovered/Not Resolved]
  - Agitation [Not Recovered/Not Resolved]
  - Aggression [Not Recovered/Not Resolved]
  - Hostility [Unknown]
  - Restlessness [Not Recovered/Not Resolved]
  - Depression [Not Recovered/Not Resolved]
  - Poor quality sleep [Not Recovered/Not Resolved]

NARRATIVE: CASE EVENT DATE: 20050101
